FAERS Safety Report 14543014 (Version 1)
Quarter: 2018Q1

REPORT INFORMATION
  Report Type: Spontaneous
  Country: US (occurrence: US)
  Receive Date: 20180216
  Receipt Date: 20180216
  Transmission Date: 20180509
  Serious: No
  Sender: FDA-Public Use
  Company Number: US-BAYER-2018-025329

PATIENT
  Age: 7 Year
  Sex: Male
  Weight: 45 kg

DRUGS (1)
  1. MIRALAX [Suspect]
     Active Substance: POLYETHYLENE GLYCOL 3350
     Indication: CONSTIPATION
     Dosage: UNK
     Route: 048
     Dates: start: 2015

REACTIONS (3)
  - Incorrect dose administered [Unknown]
  - Drug prescribing error [Unknown]
  - Abdominal pain upper [None]

NARRATIVE: CASE EVENT DATE: 2015
